FAERS Safety Report 22136536 (Version 1)
Quarter: 2023Q1

REPORT INFORMATION
  Report Type: Spontaneous
  Country: FR (occurrence: FR)
  Receive Date: 20230324
  Receipt Date: 20230324
  Transmission Date: 20230417
  Serious: Yes (Hospitalization)
  Sender: FDA-Public Use
  Company Number: FR-ORGANON-O2303FRA001279

PATIENT
  Age: 75 Year
  Sex: Female

DRUGS (1)
  1. ZOCOR [Suspect]
     Active Substance: SIMVASTATIN
     Dosage: UNK
     Route: 048
     Dates: start: 2003

REACTIONS (5)
  - Cholelithiasis [Unknown]
  - Pancreatic cyst [Unknown]
  - Pancreatic injury [Unknown]
  - Lipase increased [Unknown]
  - Jaundice [Unknown]

NARRATIVE: CASE EVENT DATE: 20230301
